FAERS Safety Report 7710826-4 (Version None)
Quarter: 2011Q3

REPORT INFORMATION
  Report Type: 
  Country: None (occurrence: None)
  Receive Date: 20110825
  Receipt Date: 20110615
  Transmission Date: 20111222
  Serious: Yes (Other)
  Sender: FDA-Public Use
  Company Number: GB-BAXTER-2011BH023865

PATIENT
  Sex: Male

DRUGS (1)
  1. ANTIHEMOPHILIC FACTOR NOS [Suspect]
     Indication: VON WILLEBRAND'S DISEASE
     Route: 065
     Dates: start: 19820101

REACTIONS (1)
  - HEPATITIS C [None]
